FAERS Safety Report 20354164 (Version 6)
Quarter: 2022Q3

REPORT INFORMATION
  Report Type: Report from Study
  Country: US (occurrence: US)
  Receive Date: 20220120
  Receipt Date: 20220726
  Transmission Date: 20221027
  Serious: No
  Sender: FDA-Public Use
  Company Number: US-NOVARTISTESTPH-NVSC2022US011052

PATIENT
  Sex: Male

DRUGS (2)
  1. ENTRESTO [Suspect]
     Active Substance: SACUBITRIL\VALSARTAN
     Indication: Product used for unknown indication
     Dosage: 1 DOSAGE FORM, BID (97/103 MG)
     Route: 065
     Dates: start: 201601
  2. CARVEDILOL [Concomitant]
     Active Substance: CARVEDILOL
     Indication: Product used for unknown indication
     Dosage: 25 MG
     Route: 065
     Dates: start: 2016

REACTIONS (8)
  - Somnolence [Recovering/Resolving]
  - Blood sodium decreased [Recovered/Resolved]
  - Hypotension [Not Recovered/Not Resolved]
  - Cough [Unknown]
  - COVID-19 [Recovering/Resolving]
  - Fatigue [Unknown]
  - Body temperature increased [Unknown]
  - Decreased appetite [Not Recovered/Not Resolved]

NARRATIVE: CASE EVENT DATE: 20160101
